FAERS Safety Report 25240862 (Version 4)
Quarter: 2025Q3

REPORT INFORMATION
  Report Type: Spontaneous
  Country: US (occurrence: US)
  Receive Date: 20250425
  Receipt Date: 20250711
  Transmission Date: 20251020
  Serious: No
  Sender: BAUSCH AND LOMB
  Company Number: US-BAUSCH-BL-2025-005350

PATIENT
  Sex: Female

DRUGS (2)
  1. XIFAXAN [Suspect]
     Active Substance: RIFAXIMIN
     Indication: Irritable bowel syndrome
     Route: 048
     Dates: start: 2024, end: 2024
  2. XIFAXAN [Suspect]
     Active Substance: RIFAXIMIN
     Indication: Gastrointestinal microorganism overgrowth

REACTIONS (4)
  - Irritable bowel syndrome [Recovered/Resolved]
  - Gastrointestinal microorganism overgrowth [Recovered/Resolved]
  - Disease recurrence [Recovered/Resolved]
  - Insurance issue [Unknown]

NARRATIVE: CASE EVENT DATE: 20240101
